FAERS Safety Report 8663045 (Version 2)
Quarter: 2012Q4

REPORT INFORMATION
  Report Type: 
  Country: US (occurrence: US)
  Receive Date: 20120713
  Receipt Date: 20120928
  Transmission Date: 20130627
  Serious: Yes (Other)
  Sender: FDA-Public Use
  Company Number: US-PAR PHARMACEUTICAL, INC-2012SCPR004485

PATIENT

DRUGS (1)
  1. HYDROXYUREA [Suspect]
     Indication: THROMBOCYTOSIS
     Dosage: UNK, Unknown
     Route: 065

REACTIONS (1)
  - Adverse drug reaction [Recovered/Resolved]
